FAERS Safety Report 4655030-1 (Version None)
Quarter: 2005Q2

REPORT INFORMATION
  Report Type: 
  Country: None (occurrence: None)
  Receive Date: 20050506
  Receipt Date: 20050428
  Transmission Date: 20051028
  Serious: Yes (Other)
  Sender: FDA-Public Use
  Company Number: PT-ABBOTT-05P-130-0298943-00

PATIENT
  Sex: Female
  Weight: 56 kg

DRUGS (5)
  1. KLACID [Suspect]
     Indication: RESPIRATORY TRACT INFECTION
     Route: 048
     Dates: start: 20050223, end: 20050225
  2. PARACETAMOL [Concomitant]
     Indication: DRUG USE FOR UNKNOWN INDICATION
     Route: 048
  3. MONTELUKAST [Concomitant]
     Indication: BRONCHITIS
     Route: 048
  4. THEOPHYLLINE [Concomitant]
     Indication: BRONCHITIS
     Route: 048
  5. FLUTICASONE PROPIONATE [Concomitant]
     Indication: BRONCHITIS
     Route: 048

REACTIONS (5)
  - DYSPNOEA [None]
  - EYE MOVEMENT DISORDER [None]
  - TREMOR [None]
  - UNDERDOSE [None]
  - URTICARIA [None]
